FAERS Safety Report 11914590 (Version 1)
Quarter: 2016Q1

REPORT INFORMATION
  Report Type: Spontaneous
  Country: US (occurrence: US)
  Receive Date: 20160113
  Receipt Date: 20160113
  Transmission Date: 20160526
  Serious: Yes (Death)
  Sender: FDA-Public Use
  Company Number: US-BAUSCH-BL-2016-000651

PATIENT
  Age: 87 Year
  Sex: Female

DRUGS (8)
  1. NITROGLYCERIN. [Suspect]
     Active Substance: NITROGLYCERIN
     Indication: PRODUCT USED FOR UNKNOWN INDICATION
     Route: 048
  2. CARVEDILOL. [Suspect]
     Active Substance: CARVEDILOL
     Indication: PRODUCT USED FOR UNKNOWN INDICATION
     Route: 048
  3. DILTIAZEM [Suspect]
     Active Substance: DILTIAZEM
     Route: 051
  4. CARVEDILOL. [Suspect]
     Active Substance: CARVEDILOL
     Route: 051
  5. DILTIAZEM (EXTENDED RELEASE) [Suspect]
     Active Substance: DILTIAZEM
     Route: 051
  6. DILTIAZEM [Suspect]
     Active Substance: DILTIAZEM
     Indication: PRODUCT USED FOR UNKNOWN INDICATION
     Route: 048
  7. DILTIAZEM (EXTENDED RELEASE) [Suspect]
     Active Substance: DILTIAZEM
     Indication: PRODUCT USED FOR UNKNOWN INDICATION
     Route: 048
  8. NITROGLYCERIN. [Suspect]
     Active Substance: NITROGLYCERIN
     Route: 051

REACTIONS (1)
  - Medication error [Fatal]
